FAERS Safety Report 7764423-5 (Version None)
Quarter: 2011Q3

REPORT INFORMATION
  Report Type: 
  Country: None (occurrence: None)
  Receive Date: 20110921
  Receipt Date: 20110916
  Transmission Date: 20111222
  Serious: Yes (Life-Threatening, Hospitalization)
  Sender: FDA-Public Use
  Company Number: SE-TEVA-301229ISR

PATIENT
  Sex: Male

DRUGS (3)
  1. IBUPROFEN [Concomitant]
  2. ACETAMINOPHEN [Concomitant]
  3. DOXYCYCLINE HYCLATE [Suspect]
     Indication: NEUROBORRELIOSIS
     Dosage: 400 MILLIGRAM;
     Route: 048
     Dates: start: 20110705, end: 20110707

REACTIONS (4)
  - MENINGISM [None]
  - DEPRESSED LEVEL OF CONSCIOUSNESS [None]
  - MOTOR DYSFUNCTION [None]
  - SENSORY LOSS [None]
